FAERS Safety Report 9478674 (Version 1)
Quarter: 2013Q3

REPORT INFORMATION
  Report Type: Spontaneous
  Country: NL (occurrence: NL)
  Receive Date: 20130827
  Receipt Date: 20130827
  Transmission Date: 20140515
  Serious: Yes (Hospitalization)
  Sender: FDA-Public Use
  Company Number: NL-TEVA-427610ISR

PATIENT
  Age: 79 Year
  Sex: Female
  Weight: 50 kg

DRUGS (8)
  1. FOSINOPRIL TABLET 10MG [Suspect]
     Indication: CARDIAC FAILURE
     Dosage: 30 MILLIGRAM DAILY; 1 TIME A DAY 3 PIECES
     Route: 048
     Dates: start: 2013, end: 20130816
  2. SELOKEEN ZOC 50 TABLET MGA 47,5MG [Concomitant]
     Dosage: 25 MILLIGRAM DAILY; 1DD 1/2
     Route: 048
  3. LANOXIN TABLET 0,125MG [Concomitant]
     Dosage: .125 MILLIGRAM DAILY; 1DD1
     Route: 048
  4. TRIAMCINOLONACETONIDE CREME 1MG/G [Concomitant]
     Route: 003
  5. PARACETAMOL TABLET  500MG [Concomitant]
     Dosage: AS NEEDED
     Route: 048
  6. FUROSEMIDE TABLET 40MG [Concomitant]
     Dosage: 40 MILLIGRAM DAILY; 1DD1
     Route: 048
  7. SPIRONOLACTON TABLET 25MG [Concomitant]
     Dosage: 25 MILLIGRAM DAILY; 1DD1
     Route: 048
  8. MARCOUMAR TABLET 3MG [Concomitant]
     Route: 048

REACTIONS (1)
  - Erythema multiforme [Unknown]
